FAERS Safety Report 15851406 (Version 1)
Quarter: 2019Q1

REPORT INFORMATION
  Report Type: Spontaneous
  Country: US (occurrence: US)
  Receive Date: 20190122
  Receipt Date: 20190122
  Transmission Date: 20190417
  Serious: No
  Sender: FDA-Public Use
  Company Number: US-ASTRAZENECA-2019SE07556

PATIENT
  Sex: Male

DRUGS (1)
  1. TUDORZA PRESSAIR [Suspect]
     Active Substance: ACLIDINIUM BROMIDE
     Dosage: 400.0UG/INHAL UNKNOWN
     Route: 055

REACTIONS (4)
  - Visual impairment [Unknown]
  - Product taste abnormal [Unknown]
  - Device issue [Unknown]
  - Device malfunction [Unknown]
